FAERS Safety Report 4517690-5 (Version None)
Quarter: 2004Q4

REPORT INFORMATION
  Report Type: 
  Country: None (occurrence: None)
  Receive Date: 20041203
  Receipt Date: 20041122
  Transmission Date: 20050328
  Serious: Yes (Hospitalization)
  Sender: FDA-Public Use
  Company Number: ZA-NOVOPROD-240692

PATIENT
  Age: 4 Year
  Sex: Female

DRUGS (2)
  1. ACTRAPID HM [Suspect]
     Indication: DIABETES MELLITUS
     Dosage: 2 IU, QD
     Dates: start: 20031201
  2. ACTRAPHANE HM PENSET [Suspect]
     Indication: DIABETES MELLITUS
     Dosage: 12 IU, QD
     Dates: start: 20031201

REACTIONS (4)
  - BLOOD GLUCOSE ABNORMAL [None]
  - INFECTION [None]
  - MEDICATION ERROR [None]
  - PYREXIA [None]
